FAERS Safety Report 4506987-0 (Version None)
Quarter: 2005Q1

REPORT INFORMATION
  Report Type: 
  Country: None (occurrence: None)
  Receive Date: 20041025
  Receipt Date: 20040723
  Transmission Date: 20050727
  Serious: Yes (Hospitalization)
  Sender: FDA-Public Use
  Company Number: US-JNJFOC-20040706832

PATIENT
  Age: 60 Year
  Sex: Female

DRUGS (13)
  1. INFLIXIMAB (INFLIXIMAB, RECOMBINANT) LYOPHILIZED POWDER [Suspect]
     Indication: RHEUMATOID ARTHRITIS
     Dosage: INTRAVENOUS
     Route: 042
     Dates: start: 20001220, end: 20011001
  2. CELEBREX [Concomitant]
  3. CYPROHEPTADINE (CYRPOHEPTADINE) [Concomitant]
  4. DETROL [Concomitant]
  5. PERCECET (OXYCOCET) TABLETS [Suspect]
  6. PLAQUENIL [Concomitant]
  7. PREDNISONE [Concomitant]
  8. PREMARIN [Concomitant]
  9. ROBINUL (GLYCOPYRRONIUM BROMIDE) [Concomitant]
  10. XANAX [Concomitant]
  11. NEXIUM [Concomitant]
  12. PAXIL [Concomitant]
  13. REGLAN [Concomitant]

REACTIONS (1)
  - GASTROENTERITIS VIRAL [None]
